FAERS Safety Report 5069123-0 (Version None)
Quarter: 2006Q3

REPORT INFORMATION
  Report Type: 
  Country: None (occurrence: None)
  Receive Date: 20060731
  Receipt Date: 20060718
  Transmission Date: 20061208
  Serious: Yes (Hospitalization)
  Sender: FDA-Public Use
  Company Number: 2006084602

PATIENT
  Age: 39 Year
  Sex: Male
  Weight: 103 kg

DRUGS (8)
  1. ZYVOX [Suspect]
     Indication: STAPHYLOCOCCAL INFECTION
     Dosage: 1200 MG (600 MG, 2 IN 1 D) INTRAVENOUS ; 1200 MG (600 MG, 2 IN 1 D) ORAL
     Route: 048
     Dates: start: 20060608, end: 20060622
  2. ZYVOX [Suspect]
     Indication: STAPHYLOCOCCAL INFECTION
     Dosage: 1200 MG (600 MG, 2 IN 1 D) INTRAVENOUS ; 1200 MG (600 MG, 2 IN 1 D) ORAL
     Route: 048
     Dates: start: 20060615
  3. VANCOMYCIN [Concomitant]
  4. CEFTAZIDIME [Concomitant]
  5. VFEND [Concomitant]
  6. PRODIF (FOSFLUCONAZOLE) [Concomitant]
  7. PENICILLIN G [Concomitant]
  8. RED BLOOD CELLS [Concomitant]

REACTIONS (6)
  - ASPARTATE AMINOTRANSFERASE INCREASED [None]
  - BLOOD CREATINE PHOSPHOKINASE INCREASED [None]
  - DEPRESSED LEVEL OF CONSCIOUSNESS [None]
  - DYSKINESIA [None]
  - GASTROINTESTINAL HAEMORRHAGE [None]
  - LIVER FUNCTION TEST ABNORMAL [None]
